FAERS Safety Report 9362362 (Version 1)
Quarter: 2013Q2

REPORT INFORMATION
  Report Type: Spontaneous
  Country: US (occurrence: US)
  Receive Date: 20130622
  Receipt Date: 20130622
  Transmission Date: 20140414
  Serious: No
  Sender: FDA-Public Use
  Company Number: US-B.I. PHARMACEUTICALS,INC./RIDGEFIELD-2013-BI-17110BP

PATIENT
  Age: 89 Year
  Sex: Male
  Weight: 61 kg

DRUGS (6)
  1. SPIRIVA [Suspect]
     Indication: EMPHYSEMA
     Dosage: 18 MCG
     Route: 055
     Dates: start: 201304, end: 201305
  2. SPIRIVA [Suspect]
     Indication: EMPHYSEMA
     Dosage: 18 MCG
     Route: 055
     Dates: start: 20130612
  3. LISINOPRIL [Concomitant]
     Indication: HYPERTENSION
     Dosage: 5 MG
     Route: 048
  4. SYMBICORT [Concomitant]
     Indication: EMPHYSEMA
     Route: 055
  5. VITAMINS [Concomitant]
  6. FUROSEMIDE [Concomitant]
     Indication: PERICARDIAL EFFUSION
     Dosage: 20 MG
     Route: 048

REACTIONS (5)
  - Chest discomfort [Not Recovered/Not Resolved]
  - Pain [Not Recovered/Not Resolved]
  - Abdominal discomfort [Not Recovered/Not Resolved]
  - Terminal insomnia [Unknown]
  - Chest discomfort [Not Recovered/Not Resolved]
